FAERS Safety Report 7498912-8 (Version None)
Quarter: 2011Q2

REPORT INFORMATION
  Report Type: 
  Country: None (occurrence: None)
  Receive Date: 20110524
  Receipt Date: 20110519
  Transmission Date: 20111010
  Serious: Yes (Other)
  Sender: FDA-Public Use
  Company Number: US-JNJFOC-20110501936

PATIENT
  Age: 5 Decade
  Sex: Female

DRUGS (4)
  1. NUCYNTA [Suspect]
     Indication: PAIN
     Route: 048
     Dates: start: 20110401, end: 20110428
  2. CYMBALTA [Concomitant]
     Route: 065
  3. EFFEXOR [Concomitant]
     Route: 065
  4. PPI [Concomitant]
     Route: 065

REACTIONS (1)
  - MUSCLE RIGIDITY [None]
